FAERS Safety Report 12403775 (Version 2)
Quarter: 2016Q2

REPORT INFORMATION
  Report Type: Report from Study
  Country: CO (occurrence: CO)
  Receive Date: 20160525
  Receipt Date: 20160607
  Transmission Date: 20160815
  Serious: Yes (Hospitalization, Other)
  Sender: FDA-Public Use
  Company Number: CO-AMGEN-COLSL2016064886

PATIENT
  Age: 46 Year
  Sex: Female
  Weight: 61 kg

DRUGS (2)
  1. NPLATE [Suspect]
     Active Substance: ROMIPLOSTIM
     Indication: IMMUNE THROMBOCYTOPENIC PURPURA
     Dosage: 148 MUG, QWK
     Route: 058
     Dates: start: 20160510
  2. NPLATE [Suspect]
     Active Substance: ROMIPLOSTIM
     Dosage: 220 MUG, QWK
     Route: 058
     Dates: start: 20160510

REACTIONS (2)
  - Depression [Recovering/Resolving]
  - Thrombocytopenia [Recovering/Resolving]

NARRATIVE: CASE EVENT DATE: 20160514
